FAERS Safety Report 24223462 (Version 5)
Quarter: 2025Q1

REPORT INFORMATION
  Report Type: Spontaneous
  Country: US (occurrence: US)
  Receive Date: 20240819
  Receipt Date: 20250313
  Transmission Date: 20250408
  Serious: No
  Sender: PFIZER
  Company Number: US-PFIZER INC-202400235958

PATIENT
  Age: 72 Year
  Sex: Female

DRUGS (7)
  1. MEKTOVI [Suspect]
     Active Substance: BINIMETINIB
     Indication: Metastases to lymph nodes
     Dosage: 30 MG, 2X/DAY (15MG, 2 TABLETS TWICE A DAY)
     Route: 048
  2. MEKTOVI [Suspect]
     Active Substance: BINIMETINIB
     Indication: Hepatic cancer
     Route: 048
  3. MEKTOVI [Suspect]
     Active Substance: BINIMETINIB
     Indication: Cholangiocarcinoma
     Dosage: 45 MG, 2X/DAY (TAKE 3 TABLETS 2 TIMES DAILY)
     Route: 048
  4. MEKTOVI [Suspect]
     Active Substance: BINIMETINIB
     Dosage: 30 MG, 2X/DAY (BID)
     Route: 048
  5. BRAFTOVI [Suspect]
     Active Substance: ENCORAFENIB
     Indication: Metastases to lymph nodes
     Dosage: 225 MG, DAILY (75MG, 3 CAPSULES DAILY)
     Route: 048
  6. BRAFTOVI [Suspect]
     Active Substance: ENCORAFENIB
     Indication: Hepatic cancer
     Route: 048
  7. BRAFTOVI [Suspect]
     Active Substance: ENCORAFENIB
     Indication: Cholangiocarcinoma
     Dosage: 450 MG, DAILY (75 MG, 6 CAPSULES DAILY)
     Route: 048
     Dates: start: 20241218

REACTIONS (3)
  - Illness [Unknown]
  - Intentional product misuse [Unknown]
  - Off label use [Unknown]
